FAERS Safety Report 9965047 (Version 1)
Quarter: 2014Q1

REPORT INFORMATION
  Report Type: Report from Study
  Country: US (occurrence: US)
  Receive Date: 20140305
  Receipt Date: 20140305
  Transmission Date: 20141002
  Serious: No
  Sender: FDA-Public Use
  Company Number: US-ABBVIE-13P-163-1124137-00

PATIENT
  Age: 58 Year
  Sex: Female

DRUGS (8)
  1. PANTOPRAZOLE [Concomitant]
     Indication: GASTROOESOPHAGEAL REFLUX DISEASE
     Dosage: 40MG DAILY
  2. TRAMADOL [Concomitant]
     Indication: PAIN
  3. COUMADIN [Concomitant]
     Indication: THROMBOSIS PROPHYLAXIS
     Dosage: 5MG DAILY
  4. COLCHICINE [Concomitant]
     Indication: PRODUCT USED FOR UNKNOWN INDICATION
  5. IMODIUM AD [Concomitant]
     Indication: DIARRHOEA
  6. BENADRYL [Concomitant]
     Indication: HYPERSENSITIVITY
  7. TYLENOL [Concomitant]
     Indication: PAIN
  8. HUMIRA [Suspect]
     Indication: COLITIS ULCERATIVE
     Dates: start: 20111004, end: 201303

REACTIONS (1)
  - Urticaria [Recovered/Resolved]
